FAERS Safety Report 9167729 (Version 1)
Quarter: 2013Q1

REPORT INFORMATION
  Report Type: Spontaneous
  Country: GB (occurrence: None)
  Receive Date: 20130304
  Receipt Date: 20130304
  Transmission Date: 20140127
  Serious: Yes (Other)
  Sender: FDA-Public Use
  Company Number: 2013AP003278

PATIENT
  Age: 19 Year
  Sex: Male

DRUGS (1)
  1. OMEPRAZOLE (OMEPRAZOLE) [Suspect]
     Indication: ABDOMINAL DISTENSION
     Route: 048

REACTIONS (5)
  - Stevens-Johnson syndrome [None]
  - Viral infection [None]
  - Ocular hyperaemia [None]
  - Oropharyngeal pain [None]
  - Rash [None]
